FAERS Safety Report 7014665-1 (Version None)
Quarter: 2010Q3

REPORT INFORMATION
  Report Type: 
  Country: None (occurrence: None)
  Receive Date: 20100924
  Receipt Date: 20100924
  Transmission Date: 20110219
  Serious: Yes (Hospitalization)
  Sender: FDA-Public Use
  Company Number: None

PATIENT
  Age: 57 Year
  Sex: Male
  Weight: 87.54 kg

DRUGS (1)
  1. ROSUVASTATIN [Suspect]
     Indication: HYPERLIPIDAEMIA
     Dosage: 2.5 MG EVERY DAY PO
     Route: 048
     Dates: start: 20100219, end: 20100816

REACTIONS (3)
  - BLOOD AMYLASE INCREASED [None]
  - HEPATIC ENZYME INCREASED [None]
  - LIPASE INCREASED [None]
